FAERS Safety Report 9612397 (Version 2)
Quarter: 2013Q4

REPORT INFORMATION
  Report Type: Spontaneous
  Country: PH (occurrence: PH)
  Receive Date: 20131010
  Receipt Date: 20131028
  Transmission Date: 20140711
  Serious: Yes (Death)
  Sender: FDA-Public Use
  Company Number: PH-PFIZER INC-2013289438

PATIENT
  Age: 55 Year
  Sex: Male

DRUGS (9)
  1. ALDACTONE [Concomitant]
  2. SUTENT [Suspect]
     Indication: RENAL CELL CARCINOMA
     Dosage: 37.5 MG, CYCLIC, HAD 6 THERAPY CYCLES
     Dates: start: 2011
  3. INSULIN [Concomitant]
  4. NORVASC [Concomitant]
  5. CATAPRES [Concomitant]
  6. ERYTHROPOIETIN [Concomitant]
  7. MICARDIS [Concomitant]
  8. JANUVIA [Concomitant]
  9. MORPHINE [Concomitant]

REACTIONS (1)
  - Multi-organ failure [Fatal]
